FAERS Safety Report 7680938-2 (Version None)
Quarter: 2011Q3

REPORT INFORMATION
  Report Type: 
  Country: None (occurrence: None)
  Receive Date: 20110812
  Receipt Date: 20110803
  Transmission Date: 20111222
  Serious: Yes (Other)
  Sender: FDA-Public Use
  Company Number: US-ASTRAZENECA-2011SE46478

PATIENT
  Age: 40 Year
  Sex: Female
  Weight: 82.6 kg

DRUGS (10)
  1. VESICARE [Concomitant]
  2. CRESTOR [Suspect]
     Indication: BLOOD CHOLESTEROL INCREASED
     Route: 048
     Dates: start: 20110501, end: 20110731
  3. KADIAN [Concomitant]
  4. NORVASC [Concomitant]
  5. SEROQUEL [Suspect]
     Indication: DEPRESSION
     Route: 048
     Dates: start: 20070101
  6. MAGNESIUM OXIDE [Concomitant]
  7. DILAUDID [Concomitant]
  8. NEXIUM [Suspect]
     Indication: GASTROOESOPHAGEAL REFLUX DISEASE
     Route: 048
     Dates: start: 20110401
  9. VASOTEC [Concomitant]
  10. KEPPRA [Concomitant]

REACTIONS (4)
  - CONVULSION [None]
  - OFF LABEL USE [None]
  - DRUG DOSE OMISSION [None]
  - CEREBROVASCULAR ACCIDENT [None]
